APPROVED DRUG PRODUCT: ESTRADIOL
Active Ingredient: ESTRADIOL
Strength: 2MG
Dosage Form/Route: TABLET;ORAL
Application: A040138 | Product #003
Applicant: LANNETT CO INC
Approved: Jan 30, 1998 | RLD: No | RS: No | Type: DISCN